FAERS Safety Report 6577319-1 (Version None)
Quarter: 2010Q1

REPORT INFORMATION
  Report Type: 
  Country: None (occurrence: None)
  Receive Date: 20100210
  Receipt Date: 20100205
  Transmission Date: 20100710
  Serious: Yes (Hospitalization, Other)
  Sender: FDA-Public Use
  Company Number: FR-GILEAD-2009-0020665

PATIENT
  Sex: Male
  Weight: 70 kg

DRUGS (14)
  1. HEPSERA [Suspect]
     Indication: HEPATITIS B
     Dates: start: 20020301, end: 20090801
  2. ANAFRANIL [Concomitant]
     Indication: DEPRESSION
  3. HEMIGOXINE [Concomitant]
     Indication: ARRHYTHMIA
  4. HEMIGOXINE [Concomitant]
     Indication: ATRIAL FIBRILLATION
  5. OMEXEL [Concomitant]
     Indication: BENIGN PROSTATIC HYPERPLASIA
  6. TARKA [Concomitant]
     Indication: HYPERTENSION
  7. TARKA [Concomitant]
     Indication: CARDIAC FAILURE
  8. LASILIX [Concomitant]
     Indication: HYPERTENSION
  9. XANAX [Concomitant]
     Indication: ANXIETY
  10. KARDEGIC [Concomitant]
     Indication: ARTERIAL STENT INSERTION
  11. ACETAMINOPHEN AND CODEINE PHOSPHATE [Concomitant]
  12. ZEFFIX [Concomitant]
     Indication: HEPATITIS B
     Dates: start: 19970101
  13. ATARAX [Concomitant]
     Indication: INSOMNIA
  14. ENDOTHELON [Concomitant]
     Indication: VENOUS INSUFFICIENCY

REACTIONS (2)
  - FANCONI SYNDROME ACQUIRED [None]
  - RENAL FAILURE [None]
